FAERS Safety Report 8965511 (Version 2)
Quarter: 2013Q1

REPORT INFORMATION
  Report Type: Spontaneous
  Country: US (occurrence: None)
  Receive Date: 20121205
  Receipt Date: 20130102
  Transmission Date: 20140127
  Serious: Yes (Hospitalization)
  Sender: FDA-Public Use
  Company Number: 2012UC075000625

PATIENT
  Age: 50 Year
  Sex: Female
  Weight: 59.88 kg

DRUGS (14)
  1. ETHANOL [Suspect]
  2. SOMA [Suspect]
  3. PERCOCET /00867901/ [Suspect]
  4. VALIUM [Suspect]
  5. CELEXA /00582602/ [Concomitant]
  6. GEMFIBROZIL [Concomitant]
  7. WELLBUTRIN [Concomitant]
  8. MESALAMINE [Concomitant]
  9. CIPROFLOXACIN [Concomitant]
  10. FLAGYL [Concomitant]
  11. AZATHIOPRINE [Concomitant]
  12. INFLIXIMAB [Concomitant]
  13. CIMZIA [Concomitant]
  14. ACETAMINOPHEN [Concomitant]

REACTIONS (1)
  - Toxicity to various agents [None]
